FAERS Safety Report 4554976-2 (Version None)
Quarter: 2004Q4

REPORT INFORMATION
  Report Type: 
  Country: None (occurrence: None)
  Receive Date: 20041222
  Receipt Date: 20041008
  Transmission Date: 20050328
  Serious: Yes (Hospitalization, Other)
  Sender: FDA-Public Use
  Company Number: 208630

PATIENT
  Age: 44 Year
  Sex: Male
  Weight: 49.9 kg

DRUGS (3)
  1. AVASTIN [Suspect]
     Indication: COLORECTAL CANCER METASTATIC
     Dosage: 275 MG, Q2W, INTRAVENOUS
     Route: 042
     Dates: start: 20040512, end: 20040825
  2. PAXIL [Concomitant]
  3. TRIMOX (AMOXICILLIN) [Concomitant]

REACTIONS (1)
  - INTESTINAL STOMA SITE BLEEDING [None]
